FAERS Safety Report 10491043 (Version 1)
Quarter: 2014Q4

REPORT INFORMATION
  Report Type: Spontaneous
  Country: US (occurrence: US)
  Receive Date: 20141002
  Receipt Date: 20141002
  Transmission Date: 20150528
  Serious: No
  Sender: FDA-Public Use
  Company Number: US-GLAXOSMITHKLINE-A1046333A

PATIENT
  Age: 61 Year
  Sex: Female

DRUGS (7)
  1. XOPENEX [Suspect]
     Active Substance: LEVALBUTEROL HYDROCHLORIDE
     Indication: BRONCHITIS CHRONIC
     Route: 055
     Dates: start: 2012, end: 2012
  2. ALBUTEROL. [Suspect]
     Active Substance: ALBUTEROL
     Dosage: 1PUFF AS REQUIRED
     Route: 055
  3. MUCINEX [Concomitant]
     Active Substance: GUAIFENESIN
  4. ADVAIR HFA [Suspect]
     Active Substance: FLUTICASONE PROPIONATE\SALMETEROL XINAFOATE
     Indication: BRONCHITIS CHRONIC
     Dosage: 1PUFF TWICE PER DAY
     Route: 055
     Dates: start: 20131001
  5. QVAR [Suspect]
     Active Substance: BECLOMETHASONE DIPROPIONATE
     Dosage: 1PUFF TWICE PER DAY
     Dates: start: 2006, end: 20121220
  6. VENTOLIN [Suspect]
     Active Substance: ALBUTEROL SULFATE
     Indication: ASTHMA
     Dosage: 1PUFF AS REQUIRED
     Route: 055
     Dates: start: 201207, end: 20121220
  7. MENTHOL. [Concomitant]
     Active Substance: MENTHOL

REACTIONS (8)
  - Retching [Recovering/Resolving]
  - Respiratory tract irritation [Unknown]
  - Adverse event [Recovering/Resolving]
  - Drug ineffective [Unknown]
  - Throat irritation [Recovering/Resolving]
  - Chest discomfort [Recovering/Resolving]
  - Cough [Recovering/Resolving]
  - Inflammation [Recovering/Resolving]

NARRATIVE: CASE EVENT DATE: 201207
